FAERS Safety Report 7986924-7 (Version None)
Quarter: 2011Q4

REPORT INFORMATION
  Report Type: 
  Country: None (occurrence: None)
  Receive Date: 20111216
  Receipt Date: 20110908
  Transmission Date: 20120403
  Serious: No
  Sender: FDA-Public Use
  Company Number: US-BRISTOL-MYERS SQUIBB COMPANY-16042095

PATIENT
  Age: 49 Year
  Sex: Male
  Weight: 73 kg

DRUGS (4)
  1. ABILIFY [Suspect]
     Dosage: EVERY MORNING
  2. PROZAC [Concomitant]
  3. CYMBALTA [Concomitant]
  4. ZYPREXA [Concomitant]

REACTIONS (2)
  - INSOMNIA [None]
  - FATIGUE [None]
